FAERS Safety Report 18014563 (Version 2)
Quarter: 2020Q3

REPORT INFORMATION
  Report Type: Spontaneous
  Country: US (occurrence: US)
  Receive Date: 20200713
  Receipt Date: 20200728
  Transmission Date: 20201103
  Serious: Yes (Death, Other)
  Sender: FDA-Public Use
  Company Number: US-GILEAD-2020-0482006

PATIENT
  Age: 61 Year
  Sex: Female
  Weight: 110 kg

DRUGS (10)
  1. REMDESIVIR. [Suspect]
     Active Substance: REMDESIVIR
     Indication: COVID-19
     Dosage: 100 MG, QD
     Route: 042
     Dates: start: 20200626, end: 20200702
  2. ROCEPHINE [Concomitant]
     Active Substance: CEFTRIAXONE SODIUM
  3. DEXAMETHASONE. [Concomitant]
     Active Substance: DEXAMETHASONE
  4. CEFEPIME [Concomitant]
     Active Substance: CEFEPIME HYDROCHLORIDE
  5. METOPROLOL. [Concomitant]
     Active Substance: METOPROLOL
  6. INSULIN HUMAN [Concomitant]
     Active Substance: INSULIN HUMAN
  7. DIAMOX SEQUELS [Concomitant]
     Active Substance: ACETAZOLAMIDE
  8. LOVENOX [Concomitant]
     Active Substance: ENOXAPARIN SODIUM
  9. FUROSEMIDE. [Concomitant]
     Active Substance: FUROSEMIDE
  10. ACETAZOLAMIDE. [Concomitant]
     Active Substance: ACETAZOLAMIDE

REACTIONS (2)
  - Cardiac arrest [Fatal]
  - Aspartate aminotransferase increased [Unknown]

NARRATIVE: CASE EVENT DATE: 20200701
